FAERS Safety Report 6052679-9 (Version None)
Quarter: 2009Q1

REPORT INFORMATION
  Report Type: 
  Country: None (occurrence: None)
  Receive Date: 20090121
  Receipt Date: 20090107
  Transmission Date: 20090719
  Serious: Yes (Other)
  Sender: FDA-Public Use
  Company Number: 233302K08USA

PATIENT
  Age: 19 Year
  Sex: Female
  Weight: 104 kg

DRUGS (5)
  1. REBIF [Suspect]
     Indication: MULTIPLE SCLEROSIS
     Dosage: 44 MCG, 3 IN 1 WEEKS, SUBCUTANEOUS
     Route: 058
     Dates: start: 20080104
  2. ADVIL LIQUI-GELS [Concomitant]
  3. UNSPECIFIED BIRTH CONTROL PILLS (ORAL CONTRACEPTIVE NOS) [Concomitant]
  4. ALBUTEROL (SALBUTAMOL /00139501/) [Concomitant]
  5. ADVAIR DISC (SERETIDE) [Concomitant]

REACTIONS (1)
  - EXTRASYSTOLES [None]
